FAERS Safety Report 15419584 (Version 1)
Quarter: 2018Q3

REPORT INFORMATION
  Report Type: Spontaneous
  Country: US (occurrence: US)
  Receive Date: 20180924
  Receipt Date: 20180924
  Transmission Date: 20181010
  Serious: Yes (Other)
  Sender: FDA-Public Use
  Company Number: US-ASTRAZENECA-2018SF23317

PATIENT
  Age: 63 Year
  Sex: Female
  Weight: 67.8 kg

DRUGS (11)
  1. NEXIUM 24HR [Suspect]
     Active Substance: ESOMEPRAZOLE MAGNESIUM
     Indication: GASTROOESOPHAGEAL REFLUX DISEASE
     Route: 048
     Dates: start: 201602
  2. TITANIUM DIOXIDE. [Concomitant]
     Active Substance: TITANIUM DIOXIDE
  3. NEXIUM 24HR [Suspect]
     Active Substance: ESOMEPRAZOLE MAGNESIUM
     Indication: DYSPEPSIA
     Route: 048
     Dates: start: 201602
  4. NEXIUM 24HR [Suspect]
     Active Substance: ESOMEPRAZOLE MAGNESIUM
     Indication: GASTROOESOPHAGEAL REFLUX DISEASE
     Route: 048
     Dates: start: 201602
  5. NEXIUM 24HR [Suspect]
     Active Substance: ESOMEPRAZOLE MAGNESIUM
     Indication: DYSPEPSIA
     Route: 048
     Dates: start: 201602
  6. CALCIUM/MINERALS/VITAMIN D [Concomitant]
     Route: 048
     Dates: start: 201602
  7. MULTIVITAMIN AND  MINERAL [Concomitant]
     Indication: MINERAL SUPPLEMENTATION
     Route: 048
  8. BIFIDOBACTERIUM LACTIS [Suspect]
     Active Substance: BIFIDOBACTERIUM ANIMALIS LACTIS
     Dosage: UNKNOWN
     Route: 065
  9. VITAMIN D3 [Concomitant]
     Active Substance: CHOLECALCIFEROL
     Indication: BONE DISORDER
  10. VITAMIN B1 [Concomitant]
     Active Substance: THIAMINE HYDROCHLORIDE
     Indication: CARPAL TUNNEL SYNDROME
     Dosage: ONE PILL(100 MG), DAILY
     Route: 048
     Dates: start: 201508
  11. MULTIVITAMIN AND  MINERAL [Concomitant]
     Indication: VITAMIN SUPPLEMENTATION
     Route: 048

REACTIONS (22)
  - Anxiety [Unknown]
  - Insomnia [Unknown]
  - Hyperhidrosis [Not Recovered/Not Resolved]
  - Oesophagitis [Unknown]
  - Bowel movement irregularity [Recovering/Resolving]
  - Condition aggravated [Not Recovered/Not Resolved]
  - Dysphagia [Unknown]
  - Pain [Unknown]
  - Renal disorder [Unknown]
  - Hypothyroidism [Unknown]
  - Stress [Unknown]
  - Mobility decreased [Unknown]
  - Haematochezia [Unknown]
  - Pollakiuria [Unknown]
  - Abdominal pain [Not Recovered/Not Resolved]
  - Drug intolerance [Unknown]
  - Blood urine present [Unknown]
  - Dehydration [Unknown]
  - Candida infection [Unknown]
  - Frequent bowel movements [Unknown]
  - Intentional product misuse [Unknown]
  - Product storage error [Unknown]

NARRATIVE: CASE EVENT DATE: 2016
